FAERS Safety Report 5981473-X (Version None)
Quarter: 2008Q4

REPORT INFORMATION
  Report Type: 
  Country: None (occurrence: None)
  Receive Date: 20081205
  Receipt Date: 20081202
  Transmission Date: 20090506
  Serious: Yes (Hospitalization)
  Sender: FDA-Public Use
  Company Number: US-ELI_LILLY_AND_COMPANY-US200812000830

PATIENT
  Age: 11 Year
  Sex: Female

DRUGS (1)
  1. HUMALOG [Suspect]
     Route: 058

REACTIONS (3)
  - DIABETIC KETOACIDOSIS [None]
  - DRUG INEFFECTIVE [None]
  - PRODUCT QUALITY ISSUE [None]
